FAERS Safety Report 7606738-7 (Version None)
Quarter: 2011Q3

REPORT INFORMATION
  Report Type: 
  Country: None (occurrence: None)
  Receive Date: 20110713
  Receipt Date: 20110711
  Transmission Date: 20111222
  Serious: Yes (Hospitalization, Disabling, Other)
  Sender: FDA-Public Use
  Company Number: US-MERCK-1103USA00638

PATIENT
  Age: 50 Year
  Sex: Female
  Weight: 66 kg

DRUGS (6)
  1. BONIVA [Suspect]
     Indication: OSTEOPOROSIS
     Route: 048
     Dates: start: 20070101, end: 20100201
  2. FOSAMAX [Suspect]
     Indication: OSTEOPOROSIS PROPHYLAXIS
     Route: 048
     Dates: start: 19990817, end: 20090101
  3. FOSAMAX [Suspect]
     Route: 048
     Dates: start: 19990817, end: 20090101
  4. FOSAMAX [Suspect]
     Indication: OSTEOPENIA
     Route: 048
     Dates: start: 19990817, end: 20090101
  5. FOSAMAX [Suspect]
     Route: 048
     Dates: start: 19990817, end: 20090101
  6. HORMONES (UNSPECIFIED) [Concomitant]
     Route: 065
     Dates: start: 19950101, end: 20020101

REACTIONS (62)
  - OSTEOARTHRITIS [None]
  - OVERDOSE [None]
  - PALPITATIONS [None]
  - PAIN IN EXTREMITY [None]
  - VITAMIN D DEFICIENCY [None]
  - BACK PAIN [None]
  - OSTEOPOROSIS [None]
  - NICOTINE DEPENDENCE [None]
  - LIVER FUNCTION TEST ABNORMAL [None]
  - FOOT FRACTURE [None]
  - INJURY [None]
  - PERIPROSTHETIC FRACTURE [None]
  - ANXIETY [None]
  - FALL [None]
  - LUNG NEOPLASM [None]
  - ARTHROPATHY [None]
  - CONSTIPATION [None]
  - ANAEMIA POSTOPERATIVE [None]
  - FRACTURE DELAYED UNION [None]
  - FATIGUE [None]
  - OSTEOPENIA [None]
  - VAGINAL POLYP [None]
  - PANCREATITIS [None]
  - ELECTROLYTE IMBALANCE [None]
  - FIBROMYALGIA [None]
  - EMPHYSEMA [None]
  - FIBROCYSTIC BREAST DISEASE [None]
  - DERMATITIS [None]
  - ARTHRALGIA [None]
  - BURSITIS [None]
  - TINNITUS [None]
  - MITRAL VALVE INCOMPETENCE [None]
  - HYPERTENSION [None]
  - GASTROINTESTINAL DISORDER [None]
  - CONTUSION [None]
  - BLOOD CHOLESTEROL INCREASED [None]
  - CARDIAC STRESS TEST ABNORMAL [None]
  - POLYP [None]
  - RIB FRACTURE [None]
  - PAIN [None]
  - MALAISE [None]
  - MUSCULOSKELETAL DISCOMFORT [None]
  - HERPES ZOSTER [None]
  - GROIN PAIN [None]
  - BLADDER DISORDER [None]
  - FEMUR FRACTURE [None]
  - DECREASED APPETITE [None]
  - CHEST PAIN [None]
  - HYPERCALCAEMIA [None]
  - CHOLECYSTITIS ACUTE [None]
  - DENTAL CARIES [None]
  - WEIGHT DECREASED [None]
  - ALOPECIA EFFLUVIUM [None]
  - DECREASED INTEREST [None]
  - ABNORMAL DREAMS [None]
  - COLITIS [None]
  - SUICIDE ATTEMPT [None]
  - ELECTROCARDIOGRAM ABNORMAL [None]
  - CHOLELITHIASIS [None]
  - SWELLING [None]
  - ERYTHEMA [None]
  - MITRAL VALVE PROLAPSE [None]
